FAERS Safety Report 8047085-1 (Version None)
Quarter: 2012Q1

REPORT INFORMATION
  Report Type: 
  Country: None (occurrence: None)
  Receive Date: 20120116
  Receipt Date: 20120110
  Transmission Date: 20120608
  Serious: Yes (Life-Threatening, Hospitalization, Other)
  Sender: FDA-Public Use
  Company Number: FR-ELI_LILLY_AND_COMPANY-FR201109008231

PATIENT
  Age: 41 Year
  Sex: Female
  Weight: 37 kg

DRUGS (12)
  1. ZYPREXA [Suspect]
     Dosage: 20 MG, UNK
     Route: 048
     Dates: start: 20110620, end: 20110704
  2. LITHIUM CARBONATE [Concomitant]
     Dosage: 250 MG, UNK
     Route: 048
     Dates: start: 20110606, end: 20110703
  3. DEPAKOTE [Concomitant]
     Dosage: 500 MG, UNK
     Route: 048
     Dates: start: 20110430, end: 20110606
  4. TERCIAN [Concomitant]
     Dosage: UNK
     Dates: start: 20110606, end: 20110630
  5. TERCIAN [Concomitant]
     Dosage: UNK
     Dates: start: 20110811, end: 20110816
  6. TRIHEXYPHENIDYL HYDROCHLORIDE [Concomitant]
     Dosage: 5 MG, UNK
     Dates: start: 20110615, end: 20110704
  7. ZYPREXA [Suspect]
     Dosage: 20 MG, UNK
     Route: 048
     Dates: start: 20110430, end: 20110606
  8. HALDOL [Concomitant]
     Dosage: UNK
     Dates: start: 20110620, end: 20110630
  9. DEPAKOTE [Concomitant]
     Dosage: 500 MG, UNK
     Route: 048
     Dates: start: 20110622, end: 20110627
  10. OXAZEPAM [Concomitant]
     Dosage: UNK
     Dates: start: 20110430, end: 20110606
  11. RISPERDAL [Concomitant]
     Dosage: UNK
     Dates: start: 20110606, end: 20110620
  12. IMOVANE [Concomitant]
     Dosage: UNK
     Dates: start: 20110606

REACTIONS (17)
  - CYTOLYTIC HEPATITIS [None]
  - CIRCULATORY COLLAPSE [None]
  - DRUG RASH WITH EOSINOPHILIA AND SYSTEMIC SYMPTOMS [None]
  - ACUTE HEPATIC FAILURE [None]
  - AGRANULOCYTOSIS [None]
  - SEPTIC SHOCK [None]
  - PANCYTOPENIA [None]
  - TOXIC EPIDERMAL NECROLYSIS [None]
  - CHOLESTASIS [None]
  - ADRENAL INSUFFICIENCY [None]
  - WEIGHT DECREASED [None]
  - ALOPECIA UNIVERSALIS [None]
  - VENTRICULAR FIBRILLATION [None]
  - MAJOR DEPRESSION [None]
  - DEPRESSIVE DELUSION [None]
  - ONYCHOLYSIS [None]
  - ESCHAR [None]
